FAERS Safety Report 10485666 (Version 2)
Quarter: 2015Q2

REPORT INFORMATION
  Report Type: Report from Study
  Country: GB (occurrence: GB)
  Receive Date: 20141001
  Receipt Date: 20150515
  Transmission Date: 20150821
  Serious: Yes (Hospitalization)
  Sender: FDA-Public Use
  Company Number: GB-ROCHE-1468042

PATIENT
  Age: 60 Year
  Sex: Male
  Weight: 68 kg

DRUGS (4)
  1. CAPECITABINE. [Suspect]
     Active Substance: CAPECITABINE
     Indication: ADENOCARCINOMA
     Dosage: MOST RECENT DOSE OF DRUG ADMINISTERED ON 03/FEB/2014.
     Route: 048
     Dates: start: 20130816
  2. EPIRUBICIN [Suspect]
     Active Substance: EPIRUBICIN
     Indication: ADENOCARCINOMA
     Dosage: MOST RECENT DOSE OF DRUG ADMINISTERED ON 03/FEB/2014.
     Route: 042
     Dates: start: 20130816
  3. CISPLATIN. [Suspect]
     Active Substance: CISPLATIN
     Indication: ADENOCARCINOMA
     Dosage: MOST RECENT DOSE OF DRUG ADMINISTERED ON 03/FEB/2014.
     Route: 042
     Dates: start: 20130816
  4. BEVACIZUMAB [Suspect]
     Active Substance: BEVACIZUMAB
     Indication: ADENOCARCINOMA
     Dosage: MOST RECENT DOSE OF DRUG ADMINISTERED ON 27/SEP/2013.
     Route: 042
     Dates: start: 20130816

REACTIONS (1)
  - Hyponatraemia [Recovered/Resolved]

NARRATIVE: CASE EVENT DATE: 20140209
